FAERS Safety Report 5353587-9 (Version None)
Quarter: 2007Q2

REPORT INFORMATION
  Report Type: 
  Country: None (occurrence: None)
  Receive Date: 20070612
  Receipt Date: 20070608
  Transmission Date: 20071010
  Serious: Yes (Other)
  Sender: FDA-Public Use
  Company Number: FR-BRISTOL-MYERS SQUIBB COMPANY-13809710

PATIENT

DRUGS (1)
  1. SUSTIVA [Suspect]
     Route: 048

REACTIONS (1)
  - PANCYTOPENIA [None]
